FAERS Safety Report 9341006 (Version 1)
Quarter: 2013Q2

REPORT INFORMATION
  Report Type: Spontaneous
  Country: US (occurrence: US)
  Receive Date: 20130610
  Receipt Date: 20130610
  Transmission Date: 20140414
  Serious: No
  Sender: FDA-Public Use
  Company Number: US-PFIZER INC-2013171798

PATIENT
  Age: 47 Year
  Sex: 0

DRUGS (2)
  1. GABAPENTIN [Suspect]
     Dosage: UNK
  2. AMITRIPTYLINE [Suspect]
     Dosage: UNK

REACTIONS (2)
  - Myoclonus [Unknown]
  - Abdominal discomfort [Unknown]
